FAERS Safety Report 10627218 (Version 2)
Quarter: 2014Q4

REPORT INFORMATION
  Report Type: Spontaneous
  Country: FR (occurrence: FR)
  Receive Date: 20141204
  Receipt Date: 20141204
  Transmission Date: 20150529
  Serious: Yes (Life-Threatening)
  Sender: FDA-Public Use
  Company Number: FR-GLAXOSMITHKLINE-B1028990A

PATIENT
  Age: 44 Year
  Sex: Male

DRUGS (1)
  1. AVODART [Suspect]
     Active Substance: DUTASTERIDE
     Indication: URINARY RETENTION
     Dosage: 0.5 MG, QD
     Route: 048
     Dates: start: 201406, end: 201408

REACTIONS (4)
  - Abnormal behaviour [Recovering/Resolving]
  - Depression [Recovering/Resolving]
  - Apathy [Recovering/Resolving]
  - Fatigue [Recovering/Resolving]

NARRATIVE: CASE EVENT DATE: 201406
